FAERS Safety Report 10507818 (Version 2)
Quarter: 2015Q3

REPORT INFORMATION
  Report Type: Spontaneous
  Country: FR (occurrence: FR)
  Receive Date: 20141009
  Receipt Date: 20150804
  Transmission Date: 20151125
  Serious: Yes (Congenital Anomaly, Other)
  Sender: FDA-Public Use
  Company Number: FR-ABBVIE-12P-056-0992480-00

PATIENT
  Sex: Female

DRUGS (1)
  1. DEPAKINE [Suspect]
     Active Substance: VALPROATE SODIUM
     Indication: MATERNAL EXPOSURE TIMING UNSPECIFIED
     Route: 064

REACTIONS (9)
  - Psychomotor skills impaired [Unknown]
  - Hypoacusis [Recovered/Resolved]
  - Spinal disorder [Recovered/Resolved]
  - Foetal exposure during pregnancy [Unknown]
  - Dysmorphism [Unknown]
  - Disturbance in social behaviour [Unknown]
  - Tremor [Recovered/Resolved]
  - Ear infection [Recovered/Resolved]
  - Hypertonia [Recovered/Resolved]

NARRATIVE: CASE EVENT DATE: 19990707
